FAERS Safety Report 12159757 (Version 3)
Quarter: 2016Q2

REPORT INFORMATION
  Report Type: Spontaneous
  Country: DE (occurrence: DE)
  Receive Date: 20160308
  Receipt Date: 20160412
  Transmission Date: 20160815
  Serious: Yes (Life-Threatening, Hospitalization, Disabling, Other)
  Sender: FDA-Public Use
  Company Number: GXKR2016DE001150

PATIENT
  Sex: Male
  Weight: 72 kg

DRUGS (5)
  1. DOMINAL//DOMPERIDONE [Concomitant]
     Indication: PRODUCT USED FOR UNKNOWN INDICATION
     Dosage: 40-80 MG/DAY AS NEEDED
  2. LEPONEX / CLOZARIL (CLOZAPINE) [Suspect]
     Active Substance: CLOZAPINE
     Indication: PRODUCT USED FOR UNKNOWN INDICATION
     Dosage: 125-125-125-150 MG/DAY
  3. CLOZAPIN 1A PHARMA [Suspect]
     Active Substance: CLOZAPINE
     Indication: PRODUCT USED FOR UNKNOWN INDICATION
     Dosage: 125-125-125-150 MG/DAY
     Route: 048
  4. PANTOZOL [Concomitant]
     Active Substance: PANTOPRAZOLE SODIUM
     Indication: PRODUCT USED FOR UNKNOWN INDICATION
     Dosage: 20 MG, QD
  5. DIPIPERON [Concomitant]
     Active Substance: PIPAMPERONE
     Indication: PRODUCT USED FOR UNKNOWN INDICATION
     Dosage: 40 - 160 MG/ PER DAY AS NEEDED

REACTIONS (10)
  - Cyst [Recovered/Resolved with Sequelae]
  - Hemiparesis [Recovered/Resolved with Sequelae]
  - Headache [Recovered/Resolved with Sequelae]
  - Gliosis [Recovered/Resolved with Sequelae]
  - Salivary hypersecretion [Recovered/Resolved with Sequelae]
  - Dyskinesia [Recovered/Resolved with Sequelae]
  - Fall [Recovered/Resolved with Sequelae]
  - Tardive dyskinesia [Recovered/Resolved with Sequelae]
  - Tremor [Recovered/Resolved with Sequelae]
  - Urinary incontinence [Recovered/Resolved with Sequelae]

NARRATIVE: CASE EVENT DATE: 2012
